FAERS Safety Report 16376815 (Version 1)
Quarter: 2019Q2

REPORT INFORMATION
  Report Type: Spontaneous
  Country: US (occurrence: US)
  Receive Date: 20190531
  Receipt Date: 20190531
  Transmission Date: 20190711
  Serious: Yes (Hospitalization)
  Sender: FDA-Public Use
  Company Number: US-SCIEGEN PHARMACEUTICALS INC-2019SCILIT00188

PATIENT
  Age: 56 Year
  Sex: Male

DRUGS (4)
  1. HEPARIN [Concomitant]
     Active Substance: HEPARIN SODIUM
  2. PROTAMINE SULFATE. [Concomitant]
     Active Substance: PROTAMINE SULFATE
  3. CLOPIDOGREL [Suspect]
     Active Substance: CLOPIDOGREL BISULFATE
  4. DABIGATRAN ETEXILATE [Suspect]
     Active Substance: DABIGATRAN ETEXILATE

REACTIONS (4)
  - Cardiac tamponade [Recovered/Resolved]
  - Aortic dissection [Recovered/Resolved]
  - Coagulopathy [Recovered/Resolved]
  - Pericardial effusion [Recovered/Resolved]
